FAERS Safety Report 5869615-8 (Version None)
Quarter: 2008Q3

REPORT INFORMATION
  Report Type: 
  Country: None (occurrence: None)
  Receive Date: 20080904
  Receipt Date: 20080528
  Transmission Date: 20090109
  Serious: No
  Sender: FDA-Public Use
  Company Number: US-KINGPHARMUSA00001-K200800617

PATIENT

DRUGS (1)
  1. CYTOMEL [Suspect]
     Dosage: UNK, ^OFF AND ON^

REACTIONS (1)
  - FEELING ABNORMAL [None]
